FAERS Safety Report 10046729 (Version 1)
Quarter: 2014Q1

REPORT INFORMATION
  Report Type: Spontaneous
  Country: US (occurrence: None)
  Receive Date: 20140326
  Receipt Date: 20140326
  Transmission Date: 20141002
  Serious: Yes (Other)
  Sender: FDA-Public Use
  Company Number: FDB-2013-044

PATIENT
  Age: 47 Year
  Sex: Male

DRUGS (5)
  1. TECHNETIUM [Suspect]
     Indication: HEPATOBILIARY SCAN
     Route: 042
     Dates: start: 20130724
  2. ZOFRAN [Concomitant]
  3. PRILOSEC [Concomitant]
  4. FLEXEROL [Concomitant]
  5. NORCO (PAIN  MEDICATION W/ACETOMEPHONIN) [Concomitant]

REACTIONS (5)
  - Hyperhidrosis [None]
  - Nausea [None]
  - Asthenia [None]
  - Dizziness [None]
  - Abdominal pain [None]
